FAERS Safety Report 15605683 (Version 1)
Quarter: 2018Q4

REPORT INFORMATION
  Report Type: Spontaneous
  Country: GB (occurrence: GB)
  Receive Date: 20181112
  Receipt Date: 20181112
  Transmission Date: 20190205
  Serious: Yes (Life-Threatening, Hospitalization, Other)
  Sender: FDA-Public Use
  Company Number: GB-ACCORD-091937

PATIENT
  Age: 87 Year
  Sex: Male

DRUGS (9)
  1. ACETYLSALICYLIC ACID [Concomitant]
     Active Substance: ASPIRIN
  2. FUROSEMIDE. [Concomitant]
     Active Substance: FUROSEMIDE
     Dosage: MORNING (USUALLY)
  3. RAMIPRIL. [Concomitant]
     Active Substance: RAMIPRIL
  4. OMEPRAZOLE. [Concomitant]
     Active Substance: OMEPRAZOLE
  5. GLYCERYL TRINITRATE [Concomitant]
     Active Substance: NITROGLYCERIN
     Route: 060
  6. METHOTREXATE. [Suspect]
     Active Substance: METHOTREXATE
     Indication: PRODUCT USED FOR UNKNOWN INDICATION
     Route: 048
     Dates: start: 20180303, end: 20180315
  7. ISOSORBIDE. [Concomitant]
     Active Substance: ISOSORBIDE
  8. SIMVASTATIN. [Concomitant]
     Active Substance: SIMVASTATIN
     Dosage: NIGHT
  9. CARVEDILOL/CARVEDILOL HYDROCHLODRIDE [Concomitant]

REACTIONS (5)
  - Haemoptysis [Unknown]
  - Oropharyngeal pain [Recovered/Resolved]
  - Mouth haemorrhage [Recovered/Resolved]
  - Thrombocytopenia [Recovered/Resolved]
  - Medication error [Unknown]
